FAERS Safety Report 4386394-4 (Version None)
Quarter: 2004Q2

REPORT INFORMATION
  Report Type: 
  Country: None (occurrence: None)
  Receive Date: 20040625
  Receipt Date: 20040625
  Transmission Date: 20050107
  Serious: No
  Sender: FDA-Public Use
  Company Number: None

PATIENT
  Age: 64 Year
  Sex: Female
  Weight: 62.5964 kg

DRUGS (2)
  1. LEVAQUIN [Suspect]
     Indication: BRONCHITIS
     Dosage: ONE A DAY FOR 10 DAY
  2. LEVAQUIN [Suspect]
     Indication: SINUSITIS
     Dosage: ONE A DAY FOR 10 DAY

REACTIONS (3)
  - ARTHRALGIA [None]
  - BONE PAIN [None]
  - CONDITION AGGRAVATED [None]
